FAERS Safety Report 4620020-1 (Version None)
Quarter: 2005Q1

REPORT INFORMATION
  Report Type: 
  Country: None (occurrence: None)
  Receive Date: 20050321
  Receipt Date: 20050321
  Transmission Date: 20050727
  Serious: Yes (Death, Hospitalization)
  Sender: FDA-Public Use
  Company Number: None

PATIENT
  Sex: Male
  Weight: 91.9 kg

DRUGS (11)
  1. ZOLADEX [Suspect]
     Dosage: 28.8 MG
     Dates: start: 20040604, end: 20050105
  2. ASPIRIN [Concomitant]
  3. ALBUTEROL [Concomitant]
  4. ATROPINE [Concomitant]
  5. LIPITOR [Concomitant]
  6. LOVENOX [Concomitant]
  7. MARCODANTIN [Concomitant]
  8. NITRO-BID [Concomitant]
  9. REGULAR INSULIN [Concomitant]
  10. RESUSCIATATIVE MEDICATIONS [Concomitant]
  11. LASIX [Concomitant]

REACTIONS (7)
  - ANGIOPATHY [None]
  - CARDIO-RESPIRATORY ARREST [None]
  - ENCEPHALOPATHY [None]
  - HYPOXIA [None]
  - ISCHAEMIA [None]
  - LOBAR PNEUMONIA [None]
  - THERAPY NON-RESPONDER [None]
